FAERS Safety Report 9187032 (Version 1)
Quarter: 2012Q4

REPORT INFORMATION
  Report Type: 
  Country: MX (occurrence: MX)
  Receive Date: 20121031
  Receipt Date: 20121031
  Transmission Date: 20130627
  Serious: Yes (Other)
  Sender: FDA-Public Use
  Company Number: PHHY2012MX097252

PATIENT
  Age: 84 None
  Sex: Female

DRUGS (6)
  1. DIOVAN [Suspect]
     Indication: HYPERTENSION
     Dosage: 2 tablet (80 mg) each 24 hours
     Dates: start: 20120731
  2. DIOVAN [Suspect]
     Dosage: 2 tablets (80 mg) each 12 hours
     Dates: start: 20120907
  3. DIMODAN [Concomitant]
     Indication: ARRHYTHMIA
     Dosage: 1 DF, per day
     Dates: start: 199701
  4. PLAQUENIL [Concomitant]
     Indication: OSTEOARTHRITIS
     Dosage: 1 DF, each third day
     Dates: start: 200201
  5. COMBIVENT [Concomitant]
     Indication: ASTHMA
     Dosage: 1 DF, occasionally
     Dates: start: 201008
  6. ESPAVEN [Concomitant]
     Indication: COLITIS
     Dosage: 1 DF, per day
     Dates: start: 201201

REACTIONS (3)
  - Gastritis [Unknown]
  - Carcinoembryonic antigen increased [Unknown]
  - Hypertension [Not Recovered/Not Resolved]
